FAERS Safety Report 24405533 (Version 1)
Quarter: 2024Q4

REPORT INFORMATION
  Report Type: Spontaneous
  Country: FR (occurrence: FR)
  Receive Date: 20241007
  Receipt Date: 20241007
  Transmission Date: 20250115
  Serious: Yes (Other)
  Sender: NOVARTIS
  Company Number: None

PATIENT
  Age: 10 Year
  Sex: Male

DRUGS (2)
  1. DABRAFENIB [Suspect]
     Active Substance: DABRAFENIB
     Indication: Histiocytosis
     Dosage: 2 DOSAGE FORM, QD
     Route: 048
  2. VEMURAFENIB [Suspect]
     Active Substance: VEMURAFENIB
     Indication: Histiocytosis
     Route: 048

REACTIONS (4)
  - Intracranial pressure increased [Recovered/Resolved]
  - Uveitis [Recovered/Resolved]
  - Papilloedema [Recovered/Resolved]
  - Vomiting [Recovered/Resolved]

NARRATIVE: CASE EVENT DATE: 20220829
